FAERS Safety Report 4877648-3 (Version None)
Quarter: 2006Q1

REPORT INFORMATION
  Report Type: 
  Country: None (occurrence: None)
  Receive Date: 20060109
  Receipt Date: 20060105
  Transmission Date: 20060701
  Serious: Yes (Hospitalization, Other)
  Sender: FDA-Public Use
  Company Number: 2005130026

PATIENT
  Age: 41 Year
  Sex: Female

DRUGS (12)
  1. PREDNISOLONE [Suspect]
     Indication: COLITIS ULCERATIVE
     Dosage: RECTAL
     Route: 054
  2. HYDROCORTISONE SODIUM SUCCINATE [Suspect]
     Indication: COLITIS ULCERATIVE
     Dosage: PARENTERAL
     Route: 051
  3. METHYLPREDNISOLONE SODIUM SUCCINATE [Suspect]
     Indication: COLITIS ULCERATIVE
     Dosage: PARENTERAL
     Route: 051
  4. ASACOL [Concomitant]
  5. FUROSEMIDE [Concomitant]
  6. AZATHIOPRINE [Concomitant]
  7. HYOSCINE HBR HYT [Concomitant]
  8. CYCLOSPORINE [Concomitant]
  9. INFLIXIMAB (INFLIXIMAB) [Concomitant]
  10. LANSOPRAZOLE [Concomitant]
  11. ALENDRONATE SODIUM [Concomitant]
  12. ADCAL-D3             (CALCIUM CARBONATE, COLECALCIFEROL) [Concomitant]

REACTIONS (1)
  - OSTEONECROSIS [None]
